FAERS Safety Report 8803680 (Version 2)
Quarter: 2012Q4

REPORT INFORMATION
  Report Type: Report from Study
  Country: US (occurrence: US)
  Receive Date: 20120924
  Receipt Date: 20121112
  Transmission Date: 20130627
  Serious: Yes (Other)
  Sender: FDA-Public Use
  Company Number: US-JNJFOC-20120907268

PATIENT
  Age: 44 Year
  Sex: Female

DRUGS (4)
  1. REMICADE [Suspect]
     Indication: PSORIATIC ARTHROPATHY
     Route: 042
     Dates: start: 20120822
  2. UNKNOWN MEDICATION [Concomitant]
     Route: 065
  3. METFORMIN [Concomitant]
     Indication: DIABETES MELLITUS
     Route: 065
     Dates: start: 201208
  4. VITAMIN D [Concomitant]
     Indication: VITAMIN D DEFICIENCY
     Route: 065
     Dates: start: 201207

REACTIONS (2)
  - Tachycardia [Recovered/Resolved]
  - Nausea [Recovered/Resolved]
